FAERS Safety Report 5135490-2 (Version None)
Quarter: 2006Q4

REPORT INFORMATION
  Report Type: 
  Country: None (occurrence: None)
  Receive Date: 20061024
  Receipt Date: 20061024
  Transmission Date: 20070319
  Serious: Yes (Hospitalization)
  Sender: FDA-Public Use
  Company Number: None

PATIENT
  Age: 85 Year
  Sex: Female
  Weight: 61.2356 kg

DRUGS (25)
  1. RISPERIDONE [Suspect]
     Indication: VASCULAR DEMENTIA
  2. MIRTAZAPINE [Suspect]
     Indication: DEPRESSION
  3. LISINOPRIL [Suspect]
  4. COBALAMINE [Concomitant]
  5. METHOTREXATE SODIUM [Concomitant]
  6. FERROUS SULFATE TAB [Concomitant]
  7. EPOETIN INJECTION [Concomitant]
  8. RISPERIDONE [Concomitant]
  9. LEVOTHYROXINE SODIUM [Concomitant]
  10. IPRATROPIUM BROMIDE [Concomitant]
  11. MIRTAZAPINE [Concomitant]
  12. GALANTAMINE HYDROBROMIDE [Concomitant]
  13. COBALAMINE [Concomitant]
  14. METHOTREXATE SODIUM [Concomitant]
  15. FERROUS SULFATE TAB [Concomitant]
  16. EPOETIN INJECTION [Concomitant]
  17. RISPERIDONE [Concomitant]
  18. LEVOTHYROXINE SODIUM [Concomitant]
  19. IPRATROPIUM BROMIDE [Concomitant]
  20. MIRTAZAPINE [Concomitant]
  21. GALANTAMINE HYDROBROMIDE [Concomitant]
  22. LISINOPRIL [Concomitant]
  23. AMIODARONE HCL [Concomitant]
  24. NITROGLYCERIN [Concomitant]
  25. CLOPIDOGREL [Concomitant]

REACTIONS (3)
  - CONFUSIONAL STATE [None]
  - FALL [None]
  - HYPOTENSION [None]
